FAERS Safety Report 5424008-2 (Version None)
Quarter: 2007Q3

REPORT INFORMATION
  Report Type: 
  Country: None (occurrence: None)
  Receive Date: 20070727
  Receipt Date: 20070502
  Transmission Date: 20080115
  Serious: No
  Sender: FDA-Public Use
  Company Number: 263471

PATIENT
  Age: 55 Year
  Sex: Female

DRUGS (2)
  1. LEVEMIR [Suspect]
     Indication: INSULIN-REQUIRING TYPE II DIABETES MELLITUS
     Dosage: QD, SUBCUTANEOUS
     Route: 058
     Dates: start: 20070429
  2. PRANDIN [Concomitant]

REACTIONS (2)
  - FATIGUE [None]
  - PRURITUS GENERALISED [None]
